FAERS Safety Report 16024063 (Version 2)
Quarter: 2019Q3

REPORT INFORMATION
  Report Type: Spontaneous
  Country: US (occurrence: US)
  Receive Date: 20190301
  Receipt Date: 20190719
  Transmission Date: 20191004
  Serious: Yes (Other)
  Sender: FDA-Public Use
  Company Number: US-ELI_LILLY_AND_COMPANY-US201902011091

PATIENT
  Sex: Female
  Weight: 115 kg

DRUGS (2)
  1. HUMATROPE [Suspect]
     Active Substance: SOMATROPIN
     Dosage: UNK, UNKNOWN
     Route: 065
  2. HUMATROPE [Suspect]
     Active Substance: SOMATROPIN
     Indication: PRODUCT USED FOR UNKNOWN INDICATION
     Dosage: UNK, UNKNOWN
     Route: 065

REACTIONS (9)
  - Headache [Unknown]
  - Alopecia [Unknown]
  - Depression [Unknown]
  - Product preparation issue [Unknown]
  - Fatigue [Unknown]
  - Blindness [Unknown]
  - Urticaria [Unknown]
  - Malaise [Unknown]
  - Drug ineffective [Unknown]
